FAERS Safety Report 9442280 (Version 1)
Quarter: 2013Q3

REPORT INFORMATION
  Report Type: Spontaneous
  Country: US (occurrence: US)
  Receive Date: 20130806
  Receipt Date: 20130806
  Transmission Date: 20140515
  Serious: No
  Sender: FDA-Public Use
  Company Number: US-GLAXOSMITHKLINE-A0983772A

PATIENT
  Age: 71 Year
  Sex: Female

DRUGS (4)
  1. ADVAIR [Suspect]
     Indication: ASTHMA
     Dosage: 2PUFF TWICE PER DAY
     Route: 055
     Dates: start: 201101
  2. ADVAIR [Suspect]
     Indication: ASTHMA
     Dates: start: 2002, end: 2011
  3. PREDNISONE [Concomitant]
  4. COMBIVENT [Concomitant]

REACTIONS (2)
  - Ill-defined disorder [Not Recovered/Not Resolved]
  - Candida infection [Unknown]
